FAERS Safety Report 14977850 (Version 1)
Quarter: 2018Q2

REPORT INFORMATION
  Report Type: Spontaneous
  Country: US (occurrence: US)
  Receive Date: 20180515
  Receipt Date: 20180515
  Transmission Date: 20180711
  Serious: Yes (Disabling)
  Sender: FDA-Public Use
  Company Number: None

PATIENT
  Age: 47 Year
  Sex: Male
  Weight: 81 kg

DRUGS (5)
  1. NEXIUM [Concomitant]
     Active Substance: ESOMEPRAZOLE MAGNESIUM
  2. LEVOFLOXACIN. [Suspect]
     Active Substance: LEVOFLOXACIN
     Indication: PNEUMOCOCCAL INFECTION
     Dosage: ?          QUANTITY:10 DF DOSAGE FORM;?
     Route: 048
     Dates: start: 20180410, end: 20180420
  3. ZRYTEC D [Concomitant]
  4. FLUTICOSONE [Concomitant]
  5. DAILY MULTIVITAMINS [Concomitant]

REACTIONS (7)
  - Tendonitis [None]
  - Tendon disorder [None]
  - Fall [None]
  - Arthralgia [None]
  - Movement disorder [None]
  - Peripheral swelling [None]
  - Dysstasia [None]

NARRATIVE: CASE EVENT DATE: 20180422
